FAERS Safety Report 7362344-3 (Version None)
Quarter: 2011Q1

REPORT INFORMATION
  Report Type: 
  Country: None (occurrence: None)
  Receive Date: 20110318
  Receipt Date: 20110311
  Transmission Date: 20110831
  Serious: Yes (Other)
  Sender: FDA-Public Use
  Company Number: US-CEPHALON-2011001161

PATIENT
  Sex: Male

DRUGS (3)
  1. FENTANYL CITRATE [Suspect]
     Indication: BACK PAIN
     Route: 002
     Dates: start: 20050101
  2. FENTORA [Suspect]
     Indication: BACK PAIN
  3. FENTANYL [Concomitant]
     Route: 062
     Dates: start: 20010101

REACTIONS (1)
  - DRUG PRESCRIBING ERROR [None]
